FAERS Safety Report 4731812-2 (Version None)
Quarter: 2005Q3

REPORT INFORMATION
  Report Type: 
  Country: None (occurrence: None)
  Receive Date: 20050802
  Receipt Date: 20050802
  Transmission Date: 20060218
  Serious: Yes (Other)
  Sender: FDA-Public Use
  Company Number: None

PATIENT
  Age: 39 Year
  Sex: Male
  Weight: 90.7194 kg

DRUGS (2)
  1. DILANTIN [Suspect]
     Indication: CONVULSION
     Dosage: 1 CAPS 5 X PER DAY
  2. CELONTIN [Suspect]
     Indication: CONVULSION
     Dosage: 1 CAP 3 X PER DAY

REACTIONS (2)
  - CONDITION AGGRAVATED [None]
  - CONVULSION [None]
